FAERS Safety Report 5391910-X (Version None)
Quarter: 2007Q3

REPORT INFORMATION
  Report Type: 
  Country: None (occurrence: None)
  Receive Date: 20070720
  Receipt Date: 20070710
  Transmission Date: 20080115
  Serious: Yes (Disabling, Other)
  Sender: FDA-Public Use
  Company Number: HQWYE001610JUL07

PATIENT
  Age: 47 Year
  Sex: Female

DRUGS (2)
  1. PREMPRO [Suspect]
     Indication: METRORRHAGIA
     Dosage: UNKNOWN
     Route: 065
  2. PREMPRO [Suspect]
     Indication: PREOPERATIVE CARE

REACTIONS (2)
  - CAROTID ARTERY ANEURYSM [None]
  - CEREBROVASCULAR ACCIDENT [None]
